FAERS Safety Report 21689020 (Version 2)
Quarter: 2022Q4

REPORT INFORMATION
  Report Type: Spontaneous
  Country: US (occurrence: US)
  Receive Date: 20221206
  Receipt Date: 20221209
  Transmission Date: 20230113
  Serious: Yes (Other)
  Sender: FDA-Public Use
  Company Number: US-PFIZER INC-202200094510

PATIENT
  Age: 61 Year
  Sex: Male

DRUGS (4)
  1. RAPAMUNE [Suspect]
     Active Substance: SIROLIMUS
     Dosage: 1 MG, 3X/DAY, (3 PO Q DAY)
     Route: 048
  2. RAPAMUNE [Suspect]
     Active Substance: SIROLIMUS
     Dosage: 3.5 MG, 1X/DAY (1MG, 3.5 TAB), QUANTITY 90
  3. RAPAMUNE [Suspect]
     Active Substance: SIROLIMUS
     Dosage: 0.5 MG, ( 0.5MG 1 PO QD)
     Route: 048
  4. RAPAMUNE [Suspect]
     Active Substance: SIROLIMUS
     Dosage: RAPAMUNE 1MG - 90 DAYS^ SUPPLY - QTY OF 315 - TAKE 4 TABLETS ONCE A DAY

REACTIONS (4)
  - Chronic kidney disease [Unknown]
  - Skin cancer [Unknown]
  - Product prescribing error [Unknown]
  - Off label use [Unknown]
